FAERS Safety Report 11192049 (Version 1)
Quarter: 2015Q2

REPORT INFORMATION
  Report Type: Spontaneous
  Country: US (occurrence: US)
  Receive Date: 20150616
  Receipt Date: 20150616
  Transmission Date: 20150821
  Serious: Yes (Hospitalization, Other)
  Sender: FDA-Public Use
  Company Number: US-AMGEN-USASP2015057552

PATIENT
  Age: 41 Year
  Sex: Female

DRUGS (1)
  1. ENBREL [Suspect]
     Active Substance: ETANERCEPT
     Indication: RHEUMATOID ARTHRITIS
     Dosage: 25 MG, QWK
     Route: 065
     Dates: start: 20120801

REACTIONS (4)
  - Cholecystectomy [Recovered/Resolved]
  - Neutropenia [Not Recovered/Not Resolved]
  - Infection [Not Recovered/Not Resolved]
  - Central venous catheterisation [Recovered/Resolved]

NARRATIVE: CASE EVENT DATE: 201210
